FAERS Safety Report 7102024-2 (Version None)
Quarter: 2010Q4

REPORT INFORMATION
  Report Type: 
  Country: None (occurrence: None)
  Receive Date: 20101109
  Receipt Date: 20101029
  Transmission Date: 20110411
  Serious: Yes (Other)
  Sender: FDA-Public Use
  Company Number: 021337

PATIENT
  Sex: Female

DRUGS (2)
  1. LORTAB [Suspect]
  2. COPAXONE [Suspect]
     Indication: MULTIPLE SCLEROSIS
     Dosage: 20MG SUBCUTANEOUS
     Route: 058
     Dates: start: 20100912

REACTIONS (2)
  - CONVULSION [None]
  - OBSTRUCTIVE AIRWAYS DISORDER [None]
